FAERS Safety Report 6843411-7 (Version None)
Quarter: 2010Q3

REPORT INFORMATION
  Report Type: 
  Country: None (occurrence: None)
  Receive Date: 20100715
  Receipt Date: 20100708
  Transmission Date: 20110219
  Serious: Yes (Other)
  Sender: FDA-Public Use
  Company Number: US-BAYER-201027490NA

PATIENT
  Age: 41 Year
  Sex: Female

DRUGS (1)
  1. EOVIST [Suspect]
     Indication: NUCLEAR MAGNETIC RESONANCE IMAGING
     Dosage: POWER INJECTED
     Route: 042
     Dates: start: 20100626, end: 20100626

REACTIONS (2)
  - DYSPNOEA [None]
  - NAUSEA [None]
